FAERS Safety Report 6535682-1 (Version None)
Quarter: 2010Q1

REPORT INFORMATION
  Report Type: 
  Country: None (occurrence: None)
  Receive Date: 20100113
  Receipt Date: 20100111
  Transmission Date: 20100710
  Serious: Yes (Death)
  Sender: FDA-Public Use
  Company Number: FR-SANOFI-AVENTIS-2010SA001405

PATIENT
  Age: 52 Year
  Sex: Male

DRUGS (5)
  1. PLAVIX [Suspect]
     Indication: DRUG USE FOR UNKNOWN INDICATION
     Route: 048
  2. KARDEGIC [Concomitant]
     Indication: DRUG USE FOR UNKNOWN INDICATION
  3. CARDENSIEL [Concomitant]
     Indication: DRUG USE FOR UNKNOWN INDICATION
  4. TRIATEC [Concomitant]
     Indication: DRUG USE FOR UNKNOWN INDICATION
  5. TAHOR [Concomitant]
     Indication: DRUG USE FOR UNKNOWN INDICATION

REACTIONS (1)
  - DEATH [None]
